FAERS Safety Report 21933359 (Version 1)
Quarter: 2023Q1

REPORT INFORMATION
  Report Type: Spontaneous
  Country: US (occurrence: US)
  Receive Date: 20230131
  Receipt Date: 20230131
  Transmission Date: 20230417
  Serious: No
  Sender: FDA-Public Use
  Company Number: US-BAUSCHBL-2023BNL000667

PATIENT
  Age: 77 Year
  Sex: Male

DRUGS (3)
  1. LOTEMAX [Suspect]
     Active Substance: LOTEPREDNOL ETABONATE
     Indication: Product used for unknown indication
     Dosage: FOR BOTH EYES
     Route: 047
     Dates: start: 20230118, end: 202301
  2. HYDROCORTISONE [Concomitant]
     Active Substance: HYDROCORTISONE
     Indication: Blood pressure abnormal
  3. REFRESH TEARS [Concomitant]
     Active Substance: CARBOXYMETHYLCELLULOSE SODIUM
     Indication: Product used for unknown indication

REACTIONS (4)
  - Instillation site swelling [Unknown]
  - Instillation site erythema [Unknown]
  - Instillation site irritation [Unknown]
  - Instillation site lacrimation [Unknown]

NARRATIVE: CASE EVENT DATE: 20230101
